FAERS Safety Report 9391766 (Version 1)
Quarter: 2013Q3

REPORT INFORMATION
  Report Type: Spontaneous
  Country: US (occurrence: None)
  Receive Date: 20130705
  Receipt Date: 20130705
  Transmission Date: 20140515
  Serious: Yes (Other)
  Sender: FDA-Public Use
  Company Number: ACO_37143_2013

PATIENT
  Sex: Female

DRUGS (9)
  1. AMPYRA (DALFAMPRIDINE) TABLET, 10MG [Suspect]
     Indication: PRODUCT USED FOR UNKNOWN INDICATION
     Route: 048
  2. KLONOPIN (CLONAZEPAM) (TABLETS) [Concomitant]
  3. SINGULAIR [Concomitant]
  4. ZOLOFT (SERTRALINE HYDROCHLORIDE) [Concomitant]
  5. NORVASC (AMIODIPINE BESILATE) [Concomitant]
  6. PROVENTIL HFA (SALBUTAMOL) AEROSOL (SPRAY AND INHALATION) [Concomitant]
  7. NASONEX (MOMETASONE FUROATE) SPRAY (EXCEPT INHALATION) [Concomitant]
  8. TYLENOL (PARACETAMOL) TABLET [Concomitant]
  9. COPAXONE (GIATRAMER ACETATE) [Concomitant]

REACTIONS (1)
  - Burns third degree [None]
